FAERS Safety Report 9296152 (Version 1)
Quarter: 2013Q2

REPORT INFORMATION
  Report Type: Spontaneous
  Country: US (occurrence: US)
  Receive Date: 20130517
  Receipt Date: 20130517
  Transmission Date: 20140414
  Serious: Yes (Death, Hospitalization)
  Sender: FDA-Public Use
  Company Number: US-GLAXOSMITHKLINE-A0738004A

PATIENT
  Age: 68 Year
  Sex: Female
  Weight: 81.8 kg

DRUGS (1)
  1. AVANDIA [Suspect]
     Indication: TYPE 2 DIABETES MELLITUS
     Dosage: 4MG PER DAY
     Route: 048
     Dates: start: 20031204, end: 20060710

REACTIONS (10)
  - Cardio-respiratory arrest [Fatal]
  - Heart injury [Unknown]
  - Liver injury [Unknown]
  - Hepatic failure [Unknown]
  - Cerebrovascular accident [Unknown]
  - Myocardial infarction [Unknown]
  - Cardiac failure congestive [Unknown]
  - Suicide attempt [Unknown]
  - Fluid retention [Unknown]
  - Fluid overload [Unknown]
